FAERS Safety Report 7801510-7 (Version None)
Quarter: 2011Q4

REPORT INFORMATION
  Report Type: 
  Country: None (occurrence: None)
  Receive Date: 20111006
  Receipt Date: 20111006
  Transmission Date: 20120403
  Serious: Yes (Life-Threatening, Hospitalization)
  Sender: FDA-Public Use
  Company Number: None

PATIENT
  Age: 66 Year
  Sex: Male
  Weight: 68.2 kg

DRUGS (2)
  1. ZIPRASIDONE HYDROCHLORIDE [Suspect]
     Indication: BIPOLAR DISORDER
     Dosage: 40 MG EVERY DAY PO
     Route: 048
     Dates: start: 20110527, end: 20110629
  2. DRONEDARONE HCL [Suspect]
     Indication: ATRIAL FIBRILLATION
     Dosage: 400 MG BID PO
     Route: 048
     Dates: start: 20110527, end: 20110528

REACTIONS (3)
  - PALPITATIONS [None]
  - TORSADE DE POINTES [None]
  - BRADYCARDIA [None]
